FAERS Safety Report 9996218 (Version 1)
Quarter: 2014Q1

REPORT INFORMATION
  Report Type: Spontaneous
  Country: US (occurrence: None)
  Receive Date: 20140218
  Receipt Date: 20140218
  Transmission Date: 20141002
  Serious: Yes (Other)
  Sender: FDA-Public Use
  Company Number: 1000050582

PATIENT
  Age: 25 Year
  Sex: Female

DRUGS (6)
  1. VIIBRYD [Suspect]
     Indication: DEPRESSION
     Dosage: 5 MG (5 MG, 1 IN 1 D), ORAL
     Route: 048
  2. VIIBRYD [Suspect]
     Indication: ANXIETY
     Dosage: 5 MG (5 MG, 1 IN 1 D), ORAL
     Route: 048
  3. WELLBUTRIN XL (BUPROPION) (BUPROPION) [Concomitant]
  4. SPRINTEC (NORGESTIMATE, ETHINYL ESTRADIOL) (TABLETS) (NORGESTIMATE, ETHINYL ESTRADIOL) [Concomitant]
  5. AMITRIPTYLINE (AMITRIPTYLINE) (AMITRIPTYLINE) [Concomitant]
  6. SUMATRIPTAN (SUMATRIPTAN) (SUMATRIPTAN) [Concomitant]

REACTIONS (1)
  - Acne [None]
